FAERS Safety Report 5694701-5 (Version None)
Quarter: 2008Q2

REPORT INFORMATION
  Report Type: 
  Country: None (occurrence: None)
  Receive Date: 20080404
  Receipt Date: 20080402
  Transmission Date: 20081010
  Serious: Yes (Other)
  Sender: FDA-Public Use
  Company Number: B0504736A

PATIENT
  Age: 13 Year
  Sex: Male
  Weight: 46 kg

DRUGS (5)
  1. RELENZA [Suspect]
     Indication: INFLUENZA
     Dosage: 10MG TWICE PER DAY
     Route: 055
     Dates: start: 20080119, end: 20080124
  2. HUSCODE [Concomitant]
     Indication: BRONCHITIS
     Route: 048
     Dates: start: 20080119, end: 20080123
  3. COUGHNOL [Concomitant]
     Indication: BRONCHITIS
     Route: 048
     Dates: start: 20080119, end: 20080123
  4. CALONAL [Concomitant]
     Indication: INFLUENZA
     Route: 048
     Dates: start: 20080119, end: 20080124
  5. BIOFERMIN [Concomitant]
     Dosage: 3G PER DAY
     Route: 048
     Dates: start: 20080121, end: 20080123

REACTIONS (11)
  - ABDOMINAL PAIN [None]
  - ABNORMAL BEHAVIOUR [None]
  - AGGRESSION [None]
  - AMNESIA [None]
  - BODY TEMPERATURE INCREASED [None]
  - DIARRHOEA [None]
  - DYSKINESIA [None]
  - GAIT DISTURBANCE [None]
  - HEADACHE [None]
  - TREMOR [None]
  - VIRUS STOOL TEST POSITIVE [None]
